FAERS Safety Report 5743411-4 (Version None)
Quarter: 2008Q2

REPORT INFORMATION
  Report Type: 
  Country: None (occurrence: None)
  Receive Date: 20080516
  Receipt Date: 20080516
  Transmission Date: 20081010
  Serious: Yes (Other)
  Sender: FDA-Public Use
  Company Number: None

PATIENT
  Sex: Male
  Weight: 113.3993 kg

DRUGS (1)
  1. LUNESTA [Suspect]
     Indication: INSOMNIA
     Dosage: 2MG QHS PRN PO
     Route: 048
     Dates: start: 20070227

REACTIONS (2)
  - ABNORMAL BEHAVIOUR [None]
  - ILL-DEFINED DISORDER [None]
